FAERS Safety Report 16629006 (Version 7)
Quarter: 2020Q3

REPORT INFORMATION
  Report Type: Report from Study
  Country: KR (occurrence: KR)
  Receive Date: 20190725
  Receipt Date: 20200402
  Transmission Date: 20201104
  Serious: Yes (Hospitalization)
  Sender: FDA-Public Use
  Company Number: KR-ROCHE-2360043

PATIENT
  Age: 60 Year
  Sex: Female
  Weight: 54.8 kg

DRUGS (8)
  1. DUPHALAC [Concomitant]
     Active Substance: LACTULOSE
     Indication: CONSTIPATION
     Route: 048
     Dates: start: 20190725, end: 20190725
  2. PANTOLINE [Concomitant]
     Active Substance: PANTOPRAZOLE SODIUM
     Indication: DYSPEPSIA
     Route: 042
     Dates: start: 20190721, end: 20190730
  3. MUCOSTEN [Concomitant]
     Indication: PRODUCTIVE COUGH
     Route: 042
     Dates: start: 20190721, end: 20190721
  4. LOPMIN [Concomitant]
     Indication: DIARRHOEA
     Route: 048
     Dates: start: 20190704, end: 20190725
  5. MGO [Concomitant]
     Active Substance: MAGNESIUM OXIDE
     Indication: CONSTIPATION
     Route: 048
     Dates: start: 20190730, end: 20190814
  6. IPATASERTIB. [Suspect]
     Active Substance: IPATASERTIB
     Indication: BREAST CANCER
     Dosage: DATE OF MOST RECENT DOSE PRIOR TO EVENT ONSET: 16/JUL/2019
     Route: 048
     Dates: start: 20190704
  7. ATEZOLIZUMAB. [Suspect]
     Active Substance: ATEZOLIZUMAB
     Indication: BREAST CANCER
     Route: 042
     Dates: start: 20190704
  8. FULVESTRANT. [Suspect]
     Active Substance: FULVESTRANT
     Indication: BREAST CANCER
     Route: 030
     Dates: start: 20190704

REACTIONS (3)
  - Rash [Recovered/Resolved]
  - Mental status changes [Recovered/Resolved]
  - Aspartate aminotransferase increased [Recovered/Resolved]

NARRATIVE: CASE EVENT DATE: 20190714
